FAERS Safety Report 8094447-2 (Version None)
Quarter: 2012Q1

REPORT INFORMATION
  Report Type: 
  Country: None (occurrence: None)
  Receive Date: 20120130
  Receipt Date: 20120120
  Transmission Date: 20120608
  Serious: Yes (Hospitalization, Other)
  Sender: FDA-Public Use
  Company Number: US-BAYER-2011-074988

PATIENT
  Age: 22 Year
  Sex: Female
  Weight: 77 kg

DRUGS (1)
  1. YASMIN [Suspect]
     Indication: CONTRACEPTION
     Dosage: UNK
     Dates: start: 20080701, end: 20090401

REACTIONS (3)
  - CHOLECYSTITIS CHRONIC [None]
  - GALLBLADDER INJURY [None]
  - INJURY [None]
